FAERS Safety Report 7542739-5 (Version None)
Quarter: 2011Q2

REPORT INFORMATION
  Report Type: 
  Country: None (occurrence: None)
  Receive Date: 20110613
  Receipt Date: 20101117
  Transmission Date: 20111010
  Serious: Yes (Hospitalization)
  Sender: FDA-Public Use
  Company Number: A0894993A

PATIENT
  Age: 38 Year
  Sex: Male

DRUGS (1)
  1. AVANDIA [Suspect]
     Dosage: 8MG PER DAY
     Route: 048
     Dates: start: 20060116, end: 20070601

REACTIONS (4)
  - HEMIPARESIS [None]
  - AMNESIA [None]
  - FATIGUE [None]
  - TRANSIENT ISCHAEMIC ATTACK [None]
